FAERS Safety Report 22083720 (Version 6)
Quarter: 2023Q2

REPORT INFORMATION
  Report Type: Report from Study
  Country: BR (occurrence: None)
  Receive Date: 20230310
  Receipt Date: 20230515
  Transmission Date: 20230722
  Serious: Yes (Life-Threatening, Hospitalization)
  Sender: FDA-Public Use
  Company Number: BR-ROCHE-3268470

PATIENT
  Age: 86 Year
  Sex: Female
  Weight: 38.4 kg

DRUGS (30)
  1. RITUXIMAB [Suspect]
     Active Substance: RITUXIMAB
     Indication: Diffuse large B-cell lymphoma
     Dosage: MOST RECENT DOSE PRIOR TO AE/SAE WAS ON 03/JAN/2023 AND DOSE WAS 466.37 MG. ON 27/FEB/2023 DOSE WAS
     Route: 041
     Dates: start: 20221214
  2. GEMCITABINE [Suspect]
     Active Substance: GEMCITABINE
     Indication: Diffuse large B-cell lymphoma
     Dosage: MOST RECENT DOSE PRIOR TO AE/SAE  WAS ON 04/JAN/2023 AND DOSE WAS 1243.65. ON 28/FEB/2023 DOSE WAS 1
     Route: 042
     Dates: start: 20221215
  3. OXALIPLATIN [Suspect]
     Active Substance: OXALIPLATIN
     Indication: Diffuse large B-cell lymphoma
     Dosage: MOST RECENT DOSE PRIOR TO AE/SAE WAS ON 04/JAN/2023 AND DOSE WAS 124.37 MG, 0N 28/FEB/2023 DOSE WAS
     Route: 042
     Dates: start: 20221215
  4. ACETAMINOPHEN [Concomitant]
     Active Substance: ACETAMINOPHEN
     Route: 048
     Dates: start: 20221214, end: 20221215
  5. ACETAMINOPHEN [Concomitant]
     Active Substance: ACETAMINOPHEN
     Dosage: SUBSEQUENT DOSE OF ORALLY 750 MG, ONCE A DAY PARACETAMOL WAS ADMINISTERED ON 27/FEB/2023
     Route: 048
     Dates: start: 20230103, end: 20230103
  6. DIPHENHYDRAMINE [Concomitant]
     Active Substance: DIPHENHYDRAMINE
     Route: 042
     Dates: start: 20221214, end: 20221215
  7. DIPHENHYDRAMINE [Concomitant]
     Active Substance: DIPHENHYDRAMINE
     Route: 042
     Dates: start: 20230103, end: 20230104
  8. DIPHENHYDRAMINE [Concomitant]
     Active Substance: DIPHENHYDRAMINE
     Dosage: SUBSEQUENT DOSE OF INTRAVENOUSLY 50 MG, ONCE A DAY DIPHENHYDRAMINE WAS ADMINISTERED ON 27/FEB/2023
     Route: 042
     Dates: start: 20230123, end: 20230124
  9. ONDANSETRON [Concomitant]
     Active Substance: ONDANSETRON
     Route: 042
     Dates: start: 20221214, end: 20221215
  10. ONDANSETRON [Concomitant]
     Active Substance: ONDANSETRON
     Route: 048
     Dates: start: 20221215
  11. ONDANSETRON [Concomitant]
     Active Substance: ONDANSETRON
     Dosage: SUBSEQUENT DOSE OF INTRAVENOUSLY 8 MG, ONCE A DAY ONDANSENTRON WAS ADMINISTERED ON 27/FEB/2023
     Route: 042
     Dates: start: 20230103, end: 20230104
  12. OMEPRAZOLE [Concomitant]
     Active Substance: OMEPRAZOLE
     Route: 048
     Dates: start: 20221215
  13. SULFAMETHOXAZOLE\TRIMETHOPRIM [Concomitant]
     Active Substance: SULFAMETHOXAZOLE\TRIMETHOPRIM
     Route: 048
     Dates: start: 20221215
  14. ACYCLOVIR [Concomitant]
     Active Substance: ACYCLOVIR
     Route: 048
     Dates: start: 20221215
  15. SACCHAROMYCES CEREVISIAE [Concomitant]
     Active Substance: SACCHAROMYCES CEREVISIAE
     Route: 048
     Dates: start: 20221221, end: 20221228
  16. PANTOPRAZOLE [Concomitant]
     Active Substance: PANTOPRAZOLE
     Indication: Gastric haemorrhage
     Route: 042
     Dates: start: 20230117, end: 20230117
  17. HYDROCORTISONE [Concomitant]
     Active Substance: HYDROCORTISONE
     Indication: Gastric haemorrhage
     Route: 042
     Dates: start: 20230117, end: 20230117
  18. DIMENHYDRINATE;FRUCTOSE;GLUCOSE;PYRIDOXINE [Concomitant]
     Indication: Gastric haemorrhage
     Dosage: 1 AMPULE
     Route: 042
     Dates: start: 20230117, end: 20230117
  19. TRIMETAZIDINE [Concomitant]
     Active Substance: TRIMETAZIDINE
     Indication: Ischaemic stroke
     Route: 048
  20. METOPROLOL SUCCINATE [Concomitant]
     Active Substance: METOPROLOL SUCCINATE
     Indication: Ischaemic stroke
     Route: 048
  21. GRANULOCYTE COLONY-STIMULATING FACTOR NOS [Concomitant]
     Active Substance: GRANULOCYTE COLONY-STIMULATING FACTOR NOS
     Route: 058
     Dates: start: 20221221, end: 20221225
  22. LOSARTAN [Concomitant]
     Active Substance: LOSARTAN
     Indication: Ischaemic stroke
     Route: 048
  23. SIMVASTATIN [Concomitant]
     Active Substance: SIMVASTATIN
     Indication: Ischaemic stroke
     Route: 048
  24. IBANDRONATE SODIUM [Concomitant]
     Active Substance: IBANDRONATE SODIUM
     Route: 048
  25. ASPIRIN [Concomitant]
     Active Substance: ASPIRIN
     Indication: Ischaemic stroke
     Route: 048
  26. ACETAMINOPHEN\CODEINE PHOSPHATE [Concomitant]
     Active Substance: ACETAMINOPHEN\CODEINE PHOSPHATE
     Indication: Abdominal pain
     Route: 048
     Dates: start: 20221208
  27. TRAMADOL [Concomitant]
     Active Substance: TRAMADOL
     Indication: Abdominal pain
     Route: 042
     Dates: start: 20221207, end: 20221207
  28. ALLOPURINOL [Concomitant]
     Active Substance: ALLOPURINOL
     Route: 048
     Dates: start: 20221215, end: 20230123
  29. ALLOPURINOL [Concomitant]
     Active Substance: ALLOPURINOL
     Route: 048
     Dates: start: 20230124
  30. FILGRASTIM [Concomitant]
     Active Substance: FILGRASTIM
     Dosage: SUBSEQUENT DOSE OF SUBCUTANEOUSLY 300 UG, ONCE A DAY DIPHENHYDRAMINE WAS ADMINISTERED ON 06/MAR/2023
     Route: 058
     Dates: start: 20230130, end: 20230203

REACTIONS (3)
  - Gastric haemorrhage [Recovered/Resolved]
  - Anaemia [Recovered/Resolved]
  - Gastric haemorrhage [Recovering/Resolving]

NARRATIVE: CASE EVENT DATE: 20230117
